FAERS Safety Report 4369470-1 (Version None)
Quarter: 2004Q2

REPORT INFORMATION
  Report Type: 
  Country: None (occurrence: None)
  Receive Date: 20040527
  Receipt Date: 20040519
  Transmission Date: 20050107
  Serious: Yes (Death, Hospitalization, Other)
  Sender: FDA-Public Use
  Company Number: ZONI001425

PATIENT
  Age: 43 Year
  Sex: Female

DRUGS (6)
  1. ZONEGRAN [Suspect]
     Dosage: 300 MG DAILY ORAL
     Route: 048
     Dates: end: 20040416
  2. LEXAPRO [Concomitant]
  3. PHENOBARBITAL TAB [Concomitant]
  4. ABILIFY [Concomitant]
  5. VITAMIN C (ASCORBIC ACID) [Concomitant]
  6. POTASSIUM [Concomitant]

REACTIONS (4)
  - APLASTIC ANAEMIA [None]
  - CONVULSION [None]
  - PANCYTOPENIA [None]
  - PULMONARY HAEMORRHAGE [None]
